FAERS Safety Report 10747317 (Version 2)
Quarter: 2015Q2

REPORT INFORMATION
  Report Type: Spontaneous
  Country: US (occurrence: None)
  Receive Date: 20150127
  Receipt Date: 20150417
  Transmission Date: 20150821
  Serious: Yes (Other)
  Sender: FDA-Public Use
  Company Number: 2015-10290

PATIENT
  Age: 22 Year
  Sex: Female
  Weight: 61.2 kg

DRUGS (10)
  1. OXCARBAZEPINE (OXCARBAZEPINE) [Concomitant]
     Active Substance: OXCARBAZEPINE
  2. FENTANYL (FENTANYL CITRATE) [Concomitant]
     Active Substance: FENTANYL CITRATE
  3. VITAMIN D  (ERGOCALCIFEROL) [Concomitant]
     Active Substance: ERGOCALCIFEROL
  4. CLONIDINE (CLONIDINE) [Concomitant]
     Active Substance: CLONIDINE
  5. ARCALYST [Suspect]
     Active Substance: RILONACEPT
     Indication: CRYOPYRIN ASSOCIATED PERIODIC SYNDROME
     Dosage: 320 MG MILLIGRAM, EVERY 5 DAYS
     Route: 058
     Dates: start: 2007
  6. ATENOLOL ACTAVIS (ATENOLOL) [Concomitant]
  7. DIPHENHYDRAMINE (DIPHENHYDRAMINE) [Concomitant]
     Active Substance: DIPHENHYDRAMINE
  8. TPN  (AMINO ACIDS NOS, CARBOHYDRATESNOS, MINERALS NOS, VITAMINS NOS) [Concomitant]
  9. PROMETHAZINE [Concomitant]
     Active Substance: PROMETHAZINE\PROMETHAZINE HYDROCHLORIDE
  10. LISINOPRIL (LISINOPRIL) [Concomitant]
     Active Substance: LISINOPRIL

REACTIONS (4)
  - Condition aggravated [None]
  - Inappropriate schedule of drug administration [None]
  - Therapeutic response decreased [None]
  - Cryopyrin associated periodic syndrome [None]

NARRATIVE: CASE EVENT DATE: 201410
